FAERS Safety Report 8170379-6 (Version None)
Quarter: 2012Q1

REPORT INFORMATION
  Report Type: 
  Country: None (occurrence: None)
  Receive Date: 20120228
  Receipt Date: 20111026
  Transmission Date: 20120608
  Serious: Yes (Other)
  Sender: FDA-Public Use
  Company Number: JP-CELGENEUS-087-21660-12022723

PATIENT
  Sex: Female
  Weight: 74 kg

DRUGS (8)
  1. ABRAXANE [Suspect]
     Indication: BREAST CANCER METASTATIC
     Dosage: 268 MILLIGRAM
     Route: 065
     Dates: start: 20100817
  2. ABRAXANE [Suspect]
     Dosage: 268 MILLIGRAM
     Route: 065
     Dates: start: 20101012
  3. ABRAXANE [Suspect]
     Dosage: 268 MILLIGRAM
     Route: 065
     Dates: start: 20110726
  4. LOXOPROFEN [Concomitant]
     Route: 048
     Dates: start: 20100803
  5. REBAMIPIDE [Concomitant]
     Route: 048
     Dates: start: 20100803
  6. ABRAXANE [Suspect]
     Dosage: 268 MILLIGRAM
     Route: 065
     Dates: start: 20101116
  7. ABRAXANE [Suspect]
     Dosage: 268 MILLIGRAM
     Route: 065
     Dates: start: 20110830
  8. ZOMETA [Concomitant]
     Indication: METASTASES TO BONE
     Dosage: 4 MILLIGRAM
     Route: 065
     Dates: start: 20100813

REACTIONS (1)
  - MACULAR OEDEMA [None]
